FAERS Safety Report 4964776-7 (Version None)
Quarter: 2006Q2

REPORT INFORMATION
  Report Type: 
  Country: None (occurrence: None)
  Receive Date: 20060406
  Receipt Date: 20060221
  Transmission Date: 20061013
  Serious: Yes (Other)
  Sender: FDA-Public Use
  Company Number: JP-ROCHE-437885

PATIENT
  Age: 65 Year
  Sex: Female

DRUGS (2)
  1. TAMIFLU [Suspect]
     Indication: INFLUENZA
     Route: 048
     Dates: start: 20060207
  2. UNSPECIFIED DRUG [Concomitant]
     Indication: BONE DISORDER
     Dosage: CONCOMITANT DRUG (THE DRUG NAME WAS NOT REPORTED).

REACTIONS (1)
  - PANCYTOPENIA [None]
